FAERS Safety Report 5078998-0 (Version None)
Quarter: 2006Q3

REPORT INFORMATION
  Report Type: 
  Country: None (occurrence: None)
  Receive Date: 20060814
  Receipt Date: 20060425
  Transmission Date: 20061208
  Serious: Yes (Other)
  Sender: FDA-Public Use
  Company Number: PHHO2006JP06843

PATIENT
  Age: 40 Year
  Sex: Female
  Weight: 65 kg

DRUGS (11)
  1. SIMULECT [Suspect]
     Indication: RENAL TRANSPLANT
     Dosage: 20 MG, DAY 0
     Route: 042
     Dates: start: 20050701, end: 20050701
  2. SIMULECT [Suspect]
     Dosage: 20 MG, DAY 4
     Route: 042
     Dates: start: 20050705, end: 20050705
  3. CYCLOSPORINE [Suspect]
     Indication: RENAL TRANSPLANT
     Dosage: 500 MG/DAILY
     Route: 048
     Dates: start: 20050701
  4. CELLCEPT [Suspect]
     Indication: RENAL TRANSPLANT
     Dosage: 2000 MG/DAILY
     Route: 048
     Dates: start: 20050701, end: 20050807
  5. PREDNISOLONE [Suspect]
     Indication: RENAL TRANSPLANT
     Dosage: 60 MG/DAILY
     Route: 048
     Dates: start: 20050701
  6. BACTRIM [Concomitant]
     Indication: PNEUMONIA
     Dosage: 1DF
     Route: 048
     Dates: start: 20050716
  7. URSO [Concomitant]
     Indication: CHOLELITHIASIS
     Dosage: 3DF
     Route: 048
     Dates: start: 20050813
  8. BLOPRESS [Concomitant]
     Indication: HYPERTENSION
     Dosage: 1DF
     Route: 048
     Dates: start: 20050821
  9. BREDININ [Concomitant]
     Indication: RENAL TRANSPLANT
     Dosage: 100 MG/DAILY
     Route: 048
     Dates: start: 20050808
  10. PARIET [Concomitant]
     Indication: ULCER
     Dosage: 1DF
     Route: 048
     Dates: start: 20050703
  11. AMLODIN [Concomitant]
     Indication: HYPERTENSION
     Dosage: 2DF
     Route: 048
     Dates: start: 20050801

REACTIONS (6)
  - CHOLECYSTITIS ACUTE [None]
  - CYTOMEGALOVIRUS INFECTION [None]
  - HEPATITIS C ANTIBODY POSITIVE [None]
  - KIDNEY TRANSPLANT REJECTION [None]
  - LIVER FUNCTION TEST ABNORMAL [None]
  - SUTURE RELATED COMPLICATION [None]
